FAERS Safety Report 5152334-3 (Version None)
Quarter: 2006Q4

REPORT INFORMATION
  Report Type: 
  Country: None (occurrence: None)
  Receive Date: 20061116
  Receipt Date: 20061108
  Transmission Date: 20070319
  Serious: Yes (Other)
  Sender: FDA-Public Use
  Company Number: 2006AP05360

PATIENT
  Sex: Female

DRUGS (3)
  1. IRESSA [Suspect]
     Indication: LUNG NEOPLASM MALIGNANT
     Route: 048
     Dates: start: 20040101
  2. CARBOPLATIN [Suspect]
     Dosage: 6 COURSES
  3. PACLITAXEL [Suspect]
     Dosage: 6 COURSES

REACTIONS (1)
  - LEUKAEMIA [None]
